FAERS Safety Report 5664420-X (Version None)
Quarter: 2008Q1

REPORT INFORMATION
  Report Type: 
  Country: None (occurrence: None)
  Receive Date: 20080312
  Receipt Date: 20071218
  Transmission Date: 20080703
  Serious: Yes (Hospitalization, Other)
  Sender: FDA-Public Use
  Company Number: 6039940

PATIENT

DRUGS (1)
  1. CYANOKIT [Suspect]
     Indication: DRUG USE FOR UNKNOWN INDICATION
     Dosage: 1 IN 1 D
     Route: 042
     Dates: start: 20071209, end: 20071209

REACTIONS (3)
  - CHROMATURIA [None]
  - DIALYSIS [None]
  - LABORATORY TEST ABNORMAL [None]
